FAERS Safety Report 12084589 (Version 1)
Quarter: 2016Q1

REPORT INFORMATION
  Report Type: Spontaneous
  Country: GB (occurrence: GB)
  Receive Date: 20160217
  Receipt Date: 20160217
  Transmission Date: 20160526
  Serious: Yes (Other)
  Sender: FDA-Public Use
  Company Number: GB-JNJFOC-20160202914

PATIENT
  Age: 73 Year
  Sex: Female
  Weight: 71 kg

DRUGS (10)
  1. CIPROFLOXACIN. [Concomitant]
     Active Substance: CIPROFLOXACIN
     Indication: PRODUCT USED FOR UNKNOWN INDICATION
     Dosage: DOSE: 1 (UNIT UNSPECIFIED) CUMULATIVE DOSE TO FIRST REACTION: 308.083333 (UNIT UNSPECIFIED).
     Route: 065
     Dates: start: 20150824
  2. TRAMADOL. [Concomitant]
     Active Substance: TRAMADOL
     Indication: PRODUCT USED FOR UNKNOWN INDICATION
     Dosage: AS NECESSARY. DOSE: 1 (UNIT UNSPECIFIED).
     Route: 065
     Dates: start: 20150824
  3. OXYBUTYNIN [Concomitant]
     Active Substance: OXYBUTYNIN
     Indication: PRODUCT USED FOR UNKNOWN INDICATION
     Dosage: DOSE: 1 (UNIT UNSPECIFIED) CUMULATIVE DOSE TO FIRST REACTION: 419 (UNIT UNSPECIFIED).
     Route: 065
     Dates: start: 20141202
  4. SIMVASTATIN. [Concomitant]
     Active Substance: SIMVASTATIN
     Indication: PRODUCT USED FOR UNKNOWN INDICATION
     Dosage: AT NIGHT. DOSE: 1 (UNIT UNSPECIFIED) CUMULATIVE DOSE: 154. 041666 (UNIT UNSPECIFIED).
     Route: 065
     Dates: start: 20150824
  5. TRIMETHOPRIM. [Concomitant]
     Active Substance: TRIMETHOPRIM
     Indication: PRODUCT USED FOR UNKNOWN INDICATION
     Dosage: DOSE: 1 (UNIT UNSPECIFIED) CUMULATIVE DOSE TO FIRST REACTION: 96.0 (UNIT UNSPECIFIED).
     Route: 065
     Dates: start: 20151208, end: 20151211
  6. FYBOGEL [Concomitant]
     Active Substance: PLANTAGO OVATA SEED
     Indication: PRODUCT USED FOR UNKNOWN INDICATION
     Dosage: AS DIRECTED BY BOWEL SPECIALISTS, ORANGE
     Route: 065
     Dates: start: 20150323
  7. PARACETAMOL [Suspect]
     Active Substance: ACETAMINOPHEN
     Route: 065
  8. ASPIRIN. [Concomitant]
     Active Substance: ASPIRIN
     Indication: PRODUCT USED FOR UNKNOWN INDICATION
     Dosage: DOSE: 1 (UNIT UNSPECIFIED)??CUMULATIVE DOSE TO FIRST REACTION: 131.041666 (UNIT UNSPECIFIED).
     Route: 065
     Dates: start: 20150916
  9. LEVOTHYROXINE. [Concomitant]
     Active Substance: LEVOTHYROXINE
     Indication: PRODUCT USED FOR UNKNOWN INDICATION
     Dosage: EACH MORNING. DOSE: 1 (UNIT UNSPECIFIED) CUMULATIVE DOSE: 154.041666 (UNIT UNSPECIFIED).
     Route: 065
     Dates: start: 20150824
  10. PARACETAMOL [Suspect]
     Active Substance: ACETAMINOPHEN
     Indication: PRODUCT USED FOR UNKNOWN INDICATION
     Route: 065
     Dates: start: 20160118

REACTIONS (1)
  - Rash [Recovered/Resolved]

NARRATIVE: CASE EVENT DATE: 20160125
